FAERS Safety Report 5042357-7 (Version None)
Quarter: 2006Q2

REPORT INFORMATION
  Report Type: 
  Country: None (occurrence: None)
  Receive Date: 20060627
  Receipt Date: 20060622
  Transmission Date: 20061013
  Serious: No
  Sender: FDA-Public Use
  Company Number: PALADIN CASE# P-PLA155-06-45

PATIENT
  Sex: Female

DRUGS (1)
  1. PLAN B [Suspect]
     Indication: CONTRACEPTION
     Dosage: 0.75MG Q12H (2 TABLETS) ORAL
     Route: 048

REACTIONS (1)
  - OVARIAN CYST [None]
